FAERS Safety Report 10563847 (Version 1)
Quarter: 2014Q4

REPORT INFORMATION
  Report Type: Spontaneous
  Country: US (occurrence: US)
  Receive Date: 20141104
  Receipt Date: 20141104
  Transmission Date: 20150529
  Serious: Yes (Other)
  Sender: FDA-Public Use
  Company Number: US-BAYER-2014-155677

PATIENT
  Age: 70 Year
  Sex: Female
  Weight: 73 kg

DRUGS (9)
  1. IRON [IRON] [Concomitant]
  2. BAYER GENUINE ASPIRIN [Suspect]
     Active Substance: ASPIRIN
     Indication: ANALGESIC THERAPY
     Dosage: UNK, PRN
     Route: 048
  3. CLOZAPINE. [Concomitant]
     Active Substance: CLOZAPINE
  4. VITAMIN D3 [Concomitant]
     Active Substance: CHOLECALCIFEROL
  5. ALLEGRA [Concomitant]
     Active Substance: FEXOFENADINE HYDROCHLORIDE
  6. CAMPHO-PHENIQUE COLD SORE TREATMENT FOR SCAB RELIEF [Suspect]
     Active Substance: CAMPHOR\PHENOL
     Indication: ORAL HERPES
     Dosage: 1 UNIT, PRN
     Route: 061
  7. FISH OIL [Concomitant]
     Active Substance: FISH OIL
  8. SYNTHROID [Concomitant]
     Active Substance: LEVOTHYROXINE SODIUM
  9. HYDROCODONE [Concomitant]
     Active Substance: HYDROCODONE

REACTIONS (3)
  - Expired product administered [Unknown]
  - Haemorrhage [Recovered/Resolved]
  - Drug hypersensitivity [Not Recovered/Not Resolved]
